FAERS Safety Report 6153818-1 (Version None)
Quarter: 2009Q2

REPORT INFORMATION
  Report Type: 
  Country: None (occurrence: None)
  Receive Date: 20090414
  Receipt Date: 20071015
  Transmission Date: 20091009
  Serious: Yes (Other)
  Sender: FDA-Public Use
  Company Number: US-ASTRAZENECA-2007UW18857

PATIENT
  Age: 20834 Day
  Sex: Female
  Weight: 68 kg

DRUGS (16)
  1. SEROQUEL [Suspect]
     Indication: DEPRESSION
     Dosage: 25MG-100MG
     Route: 048
     Dates: start: 20040827
  2. SEROQUEL [Suspect]
     Indication: ANXIETY
     Dosage: 25MG-100MG
     Route: 048
     Dates: start: 20040827
  3. SEROQUEL [Suspect]
     Indication: INSOMNIA
     Dosage: 25MG-100MG
     Route: 048
     Dates: start: 20040827
  4. ADVAIR HFA [Concomitant]
  5. ATIVAN [Concomitant]
  6. FLUOXETINE [Concomitant]
  7. CLONIDINE [Concomitant]
  8. MEVACOR [Concomitant]
  9. ALBUTEROL [Concomitant]
  10. MOTRIN [Concomitant]
  11. TAGAMET [Concomitant]
  12. LISINOPRIL [Concomitant]
  13. PREDNISONE [Concomitant]
  14. LIBRIUM [Concomitant]
  15. GLIPIZIDE [Concomitant]
  16. LOTREL [Concomitant]

REACTIONS (10)
  - APPLICATION SITE ERYTHEMA [None]
  - BACK PAIN [None]
  - BLOOD CHOLESTEROL INCREASED [None]
  - DIABETES MELLITUS [None]
  - HYPOAESTHESIA [None]
  - HYPOGLYCAEMIA [None]
  - LIMB INJURY [None]
  - MUSCLE SPASMS [None]
  - MUSCULOSKELETAL PAIN [None]
  - VISUAL ACUITY TESTS ABNORMAL [None]
